FAERS Safety Report 17412529 (Version 1)
Quarter: 2020Q1

REPORT INFORMATION
  Report Type: Report from Study
  Country: IT (occurrence: IT)
  Receive Date: 20200213
  Receipt Date: 20200213
  Transmission Date: 20200409
  Serious: Yes (Hospitalization)
  Sender: FDA-Public Use
  Company Number: IT-TEVA-2020-IT-1184645

PATIENT
  Age: 81 Year
  Sex: Female
  Weight: 46 kg

DRUGS (4)
  1. DILTIAZEM. [Suspect]
     Active Substance: DILTIAZEM
     Route: 065
  2. ELIQUIS [Suspect]
     Active Substance: APIXABAN
     Indication: DEEP VEIN THROMBOSIS
     Dosage: 5 MG
     Route: 048
     Dates: start: 20191015, end: 20191106
  3. LASIX [Suspect]
     Active Substance: FUROSEMIDE
     Route: 065
  4. LUVION (CANRENONE) [Suspect]
     Active Substance: CANRENONE
     Route: 065

REACTIONS (2)
  - Mucosal haemorrhage [Unknown]
  - Epistaxis [Unknown]

NARRATIVE: CASE EVENT DATE: 20191106
